FAERS Safety Report 15826117 (Version 1)
Quarter: 2019Q1

REPORT INFORMATION
  Report Type: Spontaneous
  Country: US (occurrence: US)
  Receive Date: 20190115
  Receipt Date: 20190115
  Transmission Date: 20190417
  Serious: Yes (Disabling)
  Sender: FDA-Public Use
  Company Number: None

PATIENT
  Age: 58 Year
  Sex: Female
  Weight: 72 kg

DRUGS (1)
  1. PROLIA [Suspect]
     Active Substance: DENOSUMAB
     Indication: OSTEOPOROSIS
     Dosage: ?          OTHER FREQUENCY:1/6 MONTHS;?
     Route: 058
     Dates: start: 20181130

REACTIONS (8)
  - Pollakiuria [None]
  - Impaired work ability [None]
  - Arthralgia [None]
  - Micturition urgency [None]
  - Acne [None]
  - Bone pain [None]
  - Mobility decreased [None]
  - Myalgia [None]

NARRATIVE: CASE EVENT DATE: 20181214
